FAERS Safety Report 12653773 (Version 1)
Quarter: 2016Q3

REPORT INFORMATION
  Report Type: Report from Study
  Country: US (occurrence: US)
  Receive Date: 20160816
  Receipt Date: 20160816
  Transmission Date: 20161109
  Serious: No
  Sender: FDA-Public Use
  Company Number: US-AMGEN-USASL2016104463

PATIENT
  Age: 65 Year
  Sex: Female

DRUGS (1)
  1. ENBREL [Suspect]
     Active Substance: ETANERCEPT
     Indication: PSORIATIC ARTHROPATHY
     Dosage: 50 MG, WEEKLY
     Route: 065

REACTIONS (5)
  - Tympanic membrane perforation [Unknown]
  - Finger deformity [Unknown]
  - Arthritis [Unknown]
  - Ear infection [Unknown]
  - Joint effusion [Unknown]

NARRATIVE: CASE EVENT DATE: 2016
